FAERS Safety Report 4909978-0 (Version None)
Quarter: 2006Q1

REPORT INFORMATION
  Report Type: 
  Country: None (occurrence: None)
  Receive Date: 20060208
  Receipt Date: 20060126
  Transmission Date: 20060701
  Serious: Yes (Disabling, Other)
  Sender: FDA-Public Use
  Company Number: 2000014719NO

PATIENT
  Age: 38 Year
  Sex: Male
  Weight: 62 kg

DRUGS (13)
  1. ZYVOX [Suspect]
     Indication: TUBERCULOSIS
     Dosage: SEE IMAGE
     Route: 048
     Dates: start: 19990713, end: 19991201
  2. ZYVOX [Suspect]
     Indication: TUBERCULOSIS
     Dosage: SEE IMAGE
     Route: 048
     Dates: start: 19990713, end: 20000329
  3. ... [Suspect]
  4. CAPREOMYCIN [Concomitant]
  5. AMPICILLIN SODIUM [Concomitant]
  6. LEVOFLOXACIN [Concomitant]
  7. CLOFAZIMINE [Concomitant]
  8. GEMFIBROZIL [Concomitant]
  9. THYROXIN-NATRIUM (LEVOTHYROXINE SODIUM) [Concomitant]
  10. VITAMIN B COMPLEX CAP [Concomitant]
  11. POTASSIUM [Concomitant]
  12. FLUNITRAZEPAM [Concomitant]
  13. PYRAZINAMIDE [Concomitant]

REACTIONS (3)
  - ANAEMIA [None]
  - NEUROPATHY PERIPHERAL [None]
  - POLYNEUROPATHY [None]
